FAERS Safety Report 10748171 (Version 3)
Quarter: 2015Q1

REPORT INFORMATION
  Report Type: Spontaneous
  Country: SE (occurrence: SE)
  Receive Date: 20150129
  Receipt Date: 20150218
  Transmission Date: 20150721
  Serious: Yes (Life-Threatening, Hospitalization)
  Sender: FDA-Public Use
  Company Number: SE-JNJFOC-20150114158

PATIENT
  Age: 24 Year
  Sex: Male

DRUGS (4)
  1. HALDOL [Suspect]
     Active Substance: HALOPERIDOL
     Indication: PSYCHOTIC DISORDER
     Route: 042
     Dates: start: 20140204, end: 20140204
  2. STESOLID [Suspect]
     Active Substance: DIAZEPAM
     Indication: PSYCHOTIC DISORDER
     Route: 042
     Dates: start: 20140204, end: 20140204
  3. OLANZAPINE. [Concomitant]
     Active Substance: OLANZAPINE
     Route: 065
  4. THERALEN [Concomitant]
     Active Substance: TRIMEPRAZINE
     Route: 065

REACTIONS (5)
  - Overdose [Unknown]
  - Myoglobin blood increased [Unknown]
  - Depressed level of consciousness [Recovered/Resolved]
  - Incorrect route of drug administration [Unknown]
  - Electrocardiogram ST segment elevation [Unknown]

NARRATIVE: CASE EVENT DATE: 20140204
